FAERS Safety Report 24366676 (Version 1)
Quarter: 2024Q3

REPORT INFORMATION
  Report Type: Spontaneous
  Country: US (occurrence: None)
  Receive Date: 20240926
  Receipt Date: 20240926
  Transmission Date: 20241017
  Serious: Yes (Hospitalization)
  Sender: Public
  Company Number: None

PATIENT
  Sex: Male
  Weight: 90.3 kg

DRUGS (2)
  1. DEXAMETHASONE [Suspect]
     Active Substance: DEXAMETHASONE
  2. LENALIDOMIDE [Concomitant]
     Active Substance: LENALIDOMIDE

REACTIONS (5)
  - Cerebral infarction [None]
  - Pulmonary embolism [None]
  - Road traffic accident [None]
  - Head injury [None]
  - Embolic cerebellar infarction [None]

NARRATIVE: CASE EVENT DATE: 20240727
